FAERS Safety Report 8463443-5 (Version None)
Quarter: 2012Q2

REPORT INFORMATION
  Report Type: 
  Country: None (occurrence: None)
  Receive Date: 20120625
  Receipt Date: 20120618
  Transmission Date: 20120825
  Serious: Yes (Hospitalization, Disabling)
  Sender: FDA-Public Use
  Company Number: US-MERCK-1203USA03414

PATIENT
  Age: 49 Year
  Sex: Female
  Weight: 76 kg

DRUGS (14)
  1. CALCIUM (UNSPECIFIED) [Concomitant]
     Route: 065
     Dates: start: 19870101
  2. VITAMIN D (UNSPECIFIED) [Concomitant]
     Route: 065
     Dates: start: 20020101
  3. PAXIL [Concomitant]
     Indication: IRRITABLE BOWEL SYNDROME
     Route: 065
  4. DICYCLOMINE HYDROCHLORIDE [Concomitant]
     Indication: IRRITABLE BOWEL SYNDROME
     Route: 065
     Dates: start: 20070608
  5. FOSAMAX [Suspect]
     Indication: OSTEOPOROSIS
     Route: 048
     Dates: start: 19970101, end: 20090507
  6. ZETIA [Concomitant]
     Indication: HYPERLIPIDAEMIA
     Route: 048
  7. LIPITOR [Concomitant]
     Indication: HYPERLIPIDAEMIA
     Route: 065
  8. CRESTOR [Concomitant]
     Indication: HYPERLIPIDAEMIA
     Route: 065
  9. VITAMINS (UNSPECIFIED) [Concomitant]
     Route: 065
     Dates: start: 19700101
  10. FOSAMAX [Suspect]
     Route: 048
     Dates: start: 20010201
  11. EVISTA [Concomitant]
     Indication: OSTEOPOROSIS
     Route: 065
  12. VYTORIN [Concomitant]
     Indication: HYPERLIPIDAEMIA
     Route: 048
  13. FOSAMAX [Suspect]
     Route: 048
     Dates: start: 20000110
  14. LESCOL XL [Concomitant]
     Indication: HYPERLIPIDAEMIA
     Route: 065

REACTIONS (37)
  - LOW TURNOVER OSTEOPATHY [None]
  - BUNDLE BRANCH BLOCK RIGHT [None]
  - DYSPHONIA [None]
  - PARAESTHESIA [None]
  - DEEP VEIN THROMBOSIS [None]
  - ABDOMINAL PAIN UPPER [None]
  - ASTHMA [None]
  - TOOTH DISORDER [None]
  - ARTHRITIS [None]
  - FEMUR FRACTURE [None]
  - STRESS FRACTURE [None]
  - ANXIETY [None]
  - APPENDICITIS [None]
  - FOOT FRACTURE [None]
  - PATELLOFEMORAL PAIN SYNDROME [None]
  - SKIN LESION [None]
  - PAIN [None]
  - OSTEOPOROSIS [None]
  - ADHESION [None]
  - HYPERTENSION [None]
  - VITAMIN D DEFICIENCY [None]
  - INFECTION [None]
  - CHONDROPATHY [None]
  - ARTERIOSCLEROSIS [None]
  - BRONCHITIS [None]
  - ADVERSE EVENT [None]
  - JOINT DISLOCATION [None]
  - SCOLIOSIS [None]
  - LIMB INJURY [None]
  - ARTHRALGIA [None]
  - ECCHYMOSIS [None]
  - BREAST CALCIFICATIONS [None]
  - ARRHYTHMIA [None]
  - BONE DISORDER [None]
  - CHOLELITHIASIS [None]
  - BACK PAIN [None]
  - NEPHROLITHIASIS [None]
